FAERS Safety Report 8613304-3 (Version None)
Quarter: 2012Q3

REPORT INFORMATION
  Report Type: 
  Country: None (occurrence: None)
  Receive Date: 20120822
  Receipt Date: 20120806
  Transmission Date: 20120928
  Serious: Yes (Hospitalization, Disabling, Other)
  Sender: FDA-Public Use
  Company Number: US-009507513-1204USA04217

PATIENT

DRUGS (4)
  1. FOSAMAX [Suspect]
     Indication: OSTEOPENIA
     Dosage: 10 MG, QD
     Route: 048
     Dates: start: 19950101, end: 20010101
  2. FOSAMAX [Suspect]
     Dosage: 70 MG, QW
     Route: 048
     Dates: start: 20020101, end: 20080101
  3. VITAMINS (UNSPECIFIED) [Concomitant]
     Dosage: UNK
     Dates: start: 20000101
  4. CALCIUM (UNSPECIFIED) [Concomitant]
     Dosage: UNK

REACTIONS (6)
  - OSTEOPOROSIS [None]
  - STRESS FRACTURE [None]
  - FEMUR FRACTURE [None]
  - FOOT FRACTURE [None]
  - HYPERTENSION [None]
  - BLOOD CHOLESTEROL INCREASED [None]
